FAERS Safety Report 10096753 (Version 1)
Quarter: 2014Q2

REPORT INFORMATION
  Report Type: Spontaneous
  Country: US (occurrence: US)
  Receive Date: 20140422
  Receipt Date: 20140422
  Transmission Date: 20141212
  Serious: No
  Sender: FDA-Public Use
  Company Number: US-009507513-1404USA011182

PATIENT
  Sex: Female

DRUGS (7)
  1. VICTRELIS [Suspect]
     Indication: CHRONIC HEPATITIS
     Dosage: 800 MG, TID
     Route: 065
  2. COPEGUS [Suspect]
     Indication: CHRONIC HEPATITIS C
     Dosage: 1000 MG, QD
     Route: 065
     Dates: start: 20130903
  3. COPEGUS [Suspect]
     Dosage: 800 MG, QD
     Dates: start: 20131008
  4. PEGASYS [Suspect]
     Indication: CHRONIC HEPATITIS
     Dosage: UNK
     Route: 065
     Dates: start: 20130903
  5. PEGASYS [Suspect]
     Dosage: 135 MG, QW
     Route: 065
  6. ZOLOFT [Concomitant]
  7. LAMOTRIGINE [Concomitant]

REACTIONS (7)
  - Leukopenia [Unknown]
  - Influenza like illness [Unknown]
  - Neutropenia [Unknown]
  - Nausea [Unknown]
  - Rash [Recovered/Resolved]
  - Fatigue [Unknown]
  - Anaemia [Unknown]
